FAERS Safety Report 11272604 (Version 1)
Quarter: 2015Q3

REPORT INFORMATION
  Report Type: Report from Study
  Country: US (occurrence: US)
  Receive Date: 20150715
  Receipt Date: 20150715
  Transmission Date: 20151125
  Serious: Yes (Death)
  Sender: FDA-Public Use
  Company Number: US-ROCHE-1607777

PATIENT
  Age: 72 Year
  Sex: Female
  Weight: 73.2 kg

DRUGS (13)
  1. HEMP OIL [Concomitant]
     Active Substance: CANNABIS SATIVA SEED OIL
  2. LISINOPRIL. [Concomitant]
     Active Substance: LISINOPRIL
  3. MELATONIN [Concomitant]
     Active Substance: MELATONIN
  4. IPILIMUMAB [Suspect]
     Active Substance: IPILIMUMAB
     Indication: MALIGNANT MELANOMA
     Dosage: LAST DOSE PRIOR TO SAE ON 05/MAY/2015 (CYCLE 4, DAY1)
     Route: 042
     Dates: start: 20150303
  5. HYDROCHLOROTHIAZIDE. [Concomitant]
     Active Substance: HYDROCHLOROTHIAZIDE
  6. CARVEDILOL. [Concomitant]
     Active Substance: CARVEDILOL
     Route: 065
  7. LIPITOR [Concomitant]
     Active Substance: ATORVASTATIN CALCIUM
  8. VITAMIN B12 [Concomitant]
     Active Substance: CYANOCOBALAMIN
  9. MILK THISTLE [Concomitant]
     Active Substance: MILK THISTLE
  10. NORVASC [Concomitant]
     Active Substance: AMLODIPINE BESYLATE
  11. BEVACIZUMAB [Suspect]
     Active Substance: BEVACIZUMAB
     Indication: MALIGNANT MELANOMA
     Dosage: CYCEL=21?LAST DOSE PRIOR TO SAE ON 26/MAY/2015 (CYCLE 5, DAY1)
     Route: 042
     Dates: start: 20150303
  12. ASPIR 81 [Concomitant]
  13. VITAMIN C [Concomitant]
     Active Substance: ASCORBIC ACID

REACTIONS (1)
  - Sudden death [Fatal]

NARRATIVE: CASE EVENT DATE: 20150616
